FAERS Safety Report 6861436-2 (Version None)
Quarter: 2010Q3

REPORT INFORMATION
  Report Type: 
  Country: None (occurrence: None)
  Receive Date: 20100720
  Receipt Date: 20100715
  Transmission Date: 20110219
  Serious: Yes (Hospitalization)
  Sender: FDA-Public Use
  Company Number: JP-AMGEN-KDC424807

PATIENT
  Sex: Male

DRUGS (15)
  1. NEUPOGEN [Suspect]
     Indication: NEUTROPENIA
     Route: 058
     Dates: start: 20100628, end: 20100630
  2. AVASTIN [Suspect]
     Route: 041
     Dates: start: 20100531, end: 20100614
  3. CAMPTOSAR [Suspect]
     Route: 041
     Dates: start: 20100531, end: 20100614
  4. FLUOROURACIL [Suspect]
     Dates: start: 20100531, end: 20100616
  5. LEUCOVORIN CALCIUM [Suspect]
     Route: 041
     Dates: start: 20100531, end: 20100614
  6. BLOPRESS [Suspect]
     Route: 048
     Dates: start: 20090826, end: 20100701
  7. FLAVITAN [Suspect]
     Route: 048
     Dates: start: 20091111, end: 20100701
  8. HYPEN [Suspect]
     Route: 048
     Dates: start: 20100628, end: 20100701
  9. AZUNOL [Suspect]
     Route: 048
     Dates: start: 20091209, end: 20100701
  10. OMEPRAL [Suspect]
     Route: 048
     Dates: start: 20100628, end: 20100701
  11. MINOCYCLINE HCL [Suspect]
     Route: 048
     Dates: start: 20100628, end: 20100701
  12. CRAVIT [Concomitant]
     Dates: start: 19930101
  13. PRANOPROFEN [Concomitant]
     Dates: start: 19930101
  14. TIMOPTOL [Concomitant]
     Dates: start: 19930101
  15. CALONAL [Concomitant]
     Dates: start: 20100621

REACTIONS (7)
  - ACNE [None]
  - BACK PAIN [None]
  - FEBRILE NEUTROPENIA [None]
  - HAEMORRHAGE [None]
  - INTERSTITIAL LUNG DISEASE [None]
  - PLEURAL EFFUSION [None]
  - STOMATITIS [None]
